FAERS Safety Report 13098740 (Version 1)
Quarter: 2017Q1

REPORT INFORMATION
  Report Type: Spontaneous
  Country: US (occurrence: US)
  Receive Date: 20170109
  Receipt Date: 20170109
  Transmission Date: 20170428
  Serious: No
  Sender: FDA-Public Use
  Company Number: GXBR2016US002578

PATIENT
  Sex: Male
  Weight: 117.91 kg

DRUGS (3)
  1. BROMERGON [Suspect]
     Active Substance: BROMOCRIPTINE MESYLATE
     Dosage: 2.5 MG, QD
     Route: 048
     Dates: end: 201503
  2. ANDROGEL [Concomitant]
     Active Substance: TESTOSTERONE
     Indication: BLOOD TESTOSTERONE DECREASED
     Dosage: UNK DF, UNK
     Route: 065
  3. BROMERGON [Suspect]
     Active Substance: BROMOCRIPTINE MESYLATE
     Indication: HYPERPROLACTINAEMIA
     Dosage: 5 MG, QD
     Route: 048
     Dates: start: 2005, end: 201503

REACTIONS (11)
  - Learning disorder [Recovered/Resolved]
  - Disinhibition [Recovered/Resolved]
  - Affect lability [Not Recovered/Not Resolved]
  - Impulsive behaviour [Recovered/Resolved]
  - Euphoric mood [Recovered/Resolved]
  - Withdrawal syndrome [Not Recovered/Not Resolved]
  - Disturbance in attention [Not Recovered/Not Resolved]
  - Aphasia [Not Recovered/Not Resolved]
  - Judgement impaired [Recovered/Resolved]
  - Memory impairment [Not Recovered/Not Resolved]
  - Crying [Not Recovered/Not Resolved]

NARRATIVE: CASE EVENT DATE: 2005
